FAERS Safety Report 9143528 (Version 1)
Quarter: 2013Q1

REPORT INFORMATION
  Report Type: Spontaneous
  Country: US (occurrence: US)
  Receive Date: 20130306
  Receipt Date: 20130306
  Transmission Date: 20140127
  Serious: Yes (Hospitalization, Other)
  Sender: FDA-Public Use
  Company Number: US-009507513-2011SP000364

PATIENT
  Age: 38 None
  Sex: Female
  Weight: 115.21 kg

DRUGS (8)
  1. NUVARING [Suspect]
     Indication: HORMONE REPLACEMENT THERAPY
     Dosage: UNK UNK, QM
     Dates: start: 20081217, end: 20090111
  2. SYNTHROID [Concomitant]
     Indication: THYROID DISORDER
     Dosage: ALSO REPORTED AS 16DEC2008-11JAN2009
     Dates: start: 1997
  3. CYTOMEL [Concomitant]
     Indication: THYROID DISORDER
     Dosage: ALSO REPORTED AS 2008 TO PRESENT
     Dates: start: 20081202, end: 20090111
  4. VITAMINS (UNSPECIFIED) [Concomitant]
     Indication: MEDICAL DIET
     Dates: start: 20081202, end: 20090111
  5. CELEXA [Concomitant]
     Indication: ANXIETY
     Dosage: ALSO NOTED TREATMENT STARTING 06NOV2006
     Dates: start: 20081202, end: 20090111
  6. WELLBUTRIN [Concomitant]
     Indication: ANXIETY
     Dosage: ALSO NOTED TREATMENT STARTING 27NOV2006
     Dates: start: 20081202, end: 20090111
  7. VIVELLE-DOT [Concomitant]
     Indication: MENOPAUSAL SYMPTOMS
     Dosage: ALSO NOTED AS A CURRENT MEDICATION ON 06NOV2006
     Dates: start: 20081203, end: 20081215
  8. PRILOSEC [Concomitant]
     Indication: DYSPEPSIA
     Dosage: 20 MG, QD

REACTIONS (10)
  - Hypercoagulation [Unknown]
  - Hepatic steatosis [Not Recovered/Not Resolved]
  - Pulmonary embolism [Unknown]
  - Pulmonary infarction [Unknown]
  - Deep vein thrombosis [Recovered/Resolved]
  - Emotional disorder [Unknown]
  - Mental disorder [Unknown]
  - Off label use [Unknown]
  - Migraine [Unknown]
  - Chest pain [Unknown]
